FAERS Safety Report 12603977 (Version 1)
Quarter: 2016Q3

REPORT INFORMATION
  Report Type: Spontaneous
  Country: DE (occurrence: DE)
  Receive Date: 20160728
  Receipt Date: 20160728
  Transmission Date: 20161109
  Serious: Yes (Congenital Anomaly, Other)
  Sender: FDA-Public Use
  Company Number: GXKR2016DE003552

PATIENT

DRUGS (2)
  1. VALPROATE SODIUM. [Suspect]
     Active Substance: VALPROATE SODIUM
     Indication: EPILEPSY
     Dosage: 900 [MG/D ]
     Route: 064
     Dates: start: 20150913, end: 20160608
  2. LAMOTRIGINE. [Suspect]
     Active Substance: LAMOTRIGINE
     Indication: EPILEPSY
     Dosage: 200 [MG/D ]
     Route: 064
     Dates: start: 20150913, end: 20160608

REACTIONS (2)
  - Large for dates baby [Unknown]
  - Hypospadias [Not Recovered/Not Resolved]

NARRATIVE: CASE EVENT DATE: 20160608
